FAERS Safety Report 24239923 (Version 3)
Quarter: 2024Q3

REPORT INFORMATION
  Report Type: Report from Study
  Country: US (occurrence: US)
  Receive Date: 20240822
  Receipt Date: 20240927
  Transmission Date: 20241016
  Serious: Yes (Other)
  Sender: ABBVIE
  Company Number: US-ABBVIE-5883589

PATIENT
  Sex: Female

DRUGS (2)
  1. RINVOQ [Suspect]
     Active Substance: UPADACITINIB
     Indication: Colitis ulcerative
     Dosage: STRENGTH: 30MG?LAST ADMIN DATE: 2024
     Route: 048
     Dates: start: 20240314
  2. RINVOQ [Suspect]
     Active Substance: UPADACITINIB
     Indication: Colitis ulcerative
     Dosage: STRENGTH: 30MG
     Route: 048
     Dates: start: 202405

REACTIONS (4)
  - Ankle fracture [Recovering/Resolving]
  - Decreased appetite [Not Recovered/Not Resolved]
  - Fall [Recovering/Resolving]
  - Defaecation urgency [Unknown]

NARRATIVE: CASE EVENT DATE: 20240101
